FAERS Safety Report 5674176-2 (Version None)
Quarter: 2008Q1

REPORT INFORMATION
  Report Type: 
  Country: None (occurrence: None)
  Receive Date: 20080320
  Receipt Date: 20080317
  Transmission Date: 20080703
  Serious: Yes (Other)
  Sender: FDA-Public Use
  Company Number: TR-BRISTOL-MYERS SQUIBB COMPANY-14117535

PATIENT
  Age: 19 Year
  Sex: Female

DRUGS (1)
  1. KENACORT-A INJ 40 MG/ML [Suspect]
     Indication: CHALAZION
     Dosage: 1DOSAGE FORM= 40MG/ML.
     Route: 026

REACTIONS (4)
  - OCULAR VASCULAR DISORDER [None]
  - OPTIC ATROPHY [None]
  - RETINAL HAEMORRHAGE [None]
  - RETINAL VASCULAR OCCLUSION [None]
